FAERS Safety Report 5065234-4 (Version None)
Quarter: 2006Q3

REPORT INFORMATION
  Report Type: 
  Country: None (occurrence: None)
  Receive Date: 20060725
  Receipt Date: 20060717
  Transmission Date: 20061208
  Serious: Yes (Hospitalization)
  Sender: FDA-Public Use
  Company Number: 11757

PATIENT
  Age: 14 Year
  Sex: Female

DRUGS (4)
  1. METHOTREXATE [Suspect]
     Dosage: 25 MG WEEKLY SC
     Route: 058
     Dates: start: 20030401
  2. ENBREL [Suspect]
     Indication: ARTHROPATHY
     Dosage: 25 MG 2/WK SC
     Route: 058
     Dates: start: 20040318
  3. ENBREL [Suspect]
     Indication: JUVENILE ARTHRITIS
     Dosage: 25 MG 2/WK SC
     Route: 058
     Dates: start: 20040318
  4. FELDENE [Concomitant]

REACTIONS (1)
  - ARTHROSCOPY [None]
